FAERS Safety Report 5441456-5 (Version None)
Quarter: 2007Q3

REPORT INFORMATION
  Report Type: 
  Country: None (occurrence: None)
  Receive Date: 20070828
  Receipt Date: 20070814
  Transmission Date: 20080115
  Serious: Yes (Hospitalization, Other)
  Sender: FDA-Public Use
  Company Number: 2007US-09199

PATIENT
  Age: 69 Year
  Sex: Female

DRUGS (6)
  1. CLARITHROMYCIN [Suspect]
     Indication: MITRAL VALVE PROLAPSE
     Dosage: 500 MG, QD
     Dates: start: 20070727, end: 20070728
  2. TOPROL-XL [Concomitant]
  3. ATACAND [Concomitant]
  4. PREVACID [Concomitant]
  5. SIQUILFATE [Concomitant]
  6. FLUTICASONE PROPIONATE [Concomitant]

REACTIONS (1)
  - DRUG HYPERSENSITIVITY [None]
